FAERS Safety Report 21183223 (Version 2)
Quarter: 2022Q3

REPORT INFORMATION
  Report Type: Spontaneous
  Country: US (occurrence: US)
  Receive Date: 20220808
  Receipt Date: 20220818
  Transmission Date: 20221027
  Serious: No
  Sender: FDA-Public Use
  Company Number: US-AMGEN-USASP2022131781

PATIENT
  Age: 52 Year
  Sex: Female

DRUGS (2)
  1. REPATHA [Suspect]
     Active Substance: EVOLOCUMAB
     Indication: Type IIa hyperlipidaemia
     Dosage: 420MG/3.5ML QMO
     Route: 058
     Dates: start: 20220610
  2. REPATHA [Suspect]
     Active Substance: EVOLOCUMAB
     Indication: Blood cholesterol increased

REACTIONS (4)
  - Wrong technique in product usage process [Unknown]
  - Incorrect disposal of product [Unknown]
  - Underdose [Unknown]
  - Product communication issue [Unknown]

NARRATIVE: CASE EVENT DATE: 20220801
